FAERS Safety Report 17496222 (Version 3)
Quarter: 2020Q1

REPORT INFORMATION
  Report Type: Report from Study
  Country: IN (occurrence: IN)
  Receive Date: 20200304
  Receipt Date: 20200315
  Transmission Date: 20200409
  Serious: Yes (Hospitalization)
  Sender: FDA-Public Use
  Company Number: NVSC2020IN055126

PATIENT
  Age: 48 Year
  Sex: Male
  Weight: 49.3 kg

DRUGS (28)
  1. DOLO [Concomitant]
     Dosage: 650 MG, UNK
     Route: 065
     Dates: start: 20191219
  2. DUPHALAC [Concomitant]
     Active Substance: LACTULOSE
     Indication: GENERAL PHYSICAL CONDITION
     Dosage: 15 ML, UNK
     Route: 065
     Dates: start: 20191106
  3. DUPHALAC [Concomitant]
     Active Substance: LACTULOSE
     Dosage: 15 ML, UNK
     Route: 065
     Dates: start: 20191127
  4. IMODIUM [Concomitant]
     Active Substance: LOPERAMIDE HYDROCHLORIDE
     Indication: GENERAL PHYSICAL CONDITION
     Dosage: UNK
     Route: 065
     Dates: start: 20191106
  5. LASIX [Concomitant]
     Active Substance: FUROSEMIDE
     Indication: GENERAL PHYSICAL CONDITION
     Dosage: UNK
     Route: 065
     Dates: start: 20191120
  6. TOSSEX [Concomitant]
     Indication: GENERAL PHYSICAL CONDITION
     Dosage: UNK
     Route: 065
     Dates: start: 20191014
  7. DOLO [Concomitant]
     Dosage: 650 MG, UNK
     Route: 065
     Dates: start: 20191127
  8. FOLVITE [Concomitant]
     Active Substance: FOLIC ACID
     Dosage: 5 MG, UNK
     Route: 065
     Dates: start: 20191121
  9. VITAMIN B12 [Concomitant]
     Active Substance: CYANOCOBALAMIN
     Indication: GENERAL PHYSICAL CONDITION
     Dosage: UNK
     Route: 065
     Dates: start: 20191127
  10. PEMETREXED COMP-PEME+CSOLINF [Suspect]
     Active Substance: PEMETREXED
     Indication: NON-SMALL CELL LUNG CANCER
     Dosage: UNK
     Route: 042
     Dates: start: 20191106
  11. CARBOPLATIN COMP-CAB+CSOLINF [Suspect]
     Active Substance: CARBOPLATIN
     Indication: NON-SMALL CELL LUNG CANCER
     Dosage: UNK
     Route: 042
     Dates: start: 20191106
  12. PEMBROLIZUMAB COMP-PEMB+CSOLINF [Suspect]
     Active Substance: PEMBROLIZUMAB
     Indication: NON-SMALL CELL LUNG CANCER
     Dosage: UNK
     Route: 042
     Dates: start: 20191106
  13. FOLVITE [Concomitant]
     Active Substance: FOLIC ACID
     Dosage: 5 MG, UNK
     Route: 065
     Dates: start: 20191219
  14. LIVOGEN [Concomitant]
     Indication: GENERAL PHYSICAL CONDITION
     Dosage: UNK
     Route: 065
     Dates: start: 20191120
  15. VITAMIN B12 [Concomitant]
     Active Substance: CYANOCOBALAMIN
     Dosage: UNK
     Route: 065
     Dates: start: 20191219
  16. DUPHALAC [Concomitant]
     Active Substance: LACTULOSE
     Dosage: 15 ML, UNK
     Route: 065
     Dates: start: 20191219
  17. CANAKINUMAB. [Suspect]
     Active Substance: CANAKINUMAB
     Indication: NON-SMALL CELL LUNG CANCER
     Dosage: CODE NOT BROKEN
     Route: 058
     Dates: start: 20191106
  18. DOLO [Concomitant]
     Indication: GENERAL PHYSICAL CONDITION
     Dosage: 650 MG, UNK
     Route: 065
     Dates: start: 20191106
  19. IXAROLA [Concomitant]
     Active Substance: RIVAROXABAN
     Indication: GENERAL PHYSICAL CONDITION
     Dosage: 20 MG, UNK
     Route: 065
     Dates: start: 20191121
  20. ULTRACET [Concomitant]
     Active Substance: ACETAMINOPHEN\TRAMADOL HYDROCHLORIDE
     Dosage: UNK
     Route: 065
     Dates: start: 20191127
  21. DYTOR [Concomitant]
     Active Substance: TORSEMIDE
     Indication: GENERAL PHYSICAL CONDITION
     Dosage: 10 MG, UNK
     Route: 065
     Dates: start: 20191121
  22. FOLVITE [Concomitant]
     Active Substance: FOLIC ACID
     Indication: GENERAL PHYSICAL CONDITION
     Dosage: 5 MG, UNK
     Route: 065
     Dates: start: 20191106
  23. TOSSEX [Concomitant]
     Dosage: UNK
     Route: 065
     Dates: start: 20191120
  24. ALBUMIN [Concomitant]
     Active Substance: ALBUMIN HUMAN
     Indication: GENERAL PHYSICAL CONDITION
     Dosage: 100 ML, UNK
     Route: 065
     Dates: start: 20191120
  25. FOLVITE [Concomitant]
     Active Substance: FOLIC ACID
     Dosage: 5 MG, UNK
     Route: 065
     Dates: start: 20191127
  26. IMODIUM [Concomitant]
     Active Substance: LOPERAMIDE HYDROCHLORIDE
     Dosage: UNK
     Route: 065
     Dates: start: 20191127
  27. ULTRACET [Concomitant]
     Active Substance: ACETAMINOPHEN\TRAMADOL HYDROCHLORIDE
     Indication: GENERAL PHYSICAL CONDITION
     Dosage: UNK
     Route: 065
     Dates: start: 20191106
  28. ULTRACET [Concomitant]
     Active Substance: ACETAMINOPHEN\TRAMADOL HYDROCHLORIDE
     Dosage: UNK
     Route: 065
     Dates: start: 20191219

REACTIONS (1)
  - Anaemia [Not Recovered/Not Resolved]

NARRATIVE: CASE EVENT DATE: 20200225
